FAERS Safety Report 4941988-X (Version None)
Quarter: 2006Q1

REPORT INFORMATION
  Report Type: 
  Country: None (occurrence: None)
  Receive Date: 20060308
  Receipt Date: 20060212
  Transmission Date: 20060701
  Serious: Yes (Hospitalization)
  Sender: FDA-Public Use
  Company Number: 2006S1001006

PATIENT
  Age: 45 Year
  Sex: Female
  Weight: 77.2022 kg

DRUGS (9)
  1. CLOZAPINE [Suspect]
     Indication: SCHIZOPHRENIA, PARANOID TYPE
     Dosage: 75 MG; QD; ORAL
     Route: 048
     Dates: start: 20060203
  2. CLOZAPINE [Suspect]
     Indication: SCHIZOPHRENIA, PARANOID TYPE
     Dosage: 400 MG; QD;ORAL;  300 MG; QD; ORAL;
     Route: 048
     Dates: end: 20060202
  3. CLOZAPINE [Suspect]
     Indication: SCHIZOPHRENIA, PARANOID TYPE
     Dosage: 400 MG; QD;ORAL;  300 MG; QD; ORAL;
     Route: 048
     Dates: start: 20060203
  4. LITHIUM [Concomitant]
  5. CLONAZEPAM [Concomitant]
  6. DOCUSATE SODIUM [Concomitant]
  7. METOCLOPRAMIDE [Concomitant]
  8. LANSOPRAZOLE [Concomitant]
  9. SALBUTAMOL [Concomitant]

REACTIONS (4)
  - BRONCHITIS [None]
  - CONSTIPATION [None]
  - NEUTROPHIL COUNT INCREASED [None]
  - WHITE BLOOD CELL COUNT INCREASED [None]
